FAERS Safety Report 8766576 (Version 1)
Quarter: 2012Q4

REPORT INFORMATION
  Report Type: Report from Study
  Country: ES (occurrence: ES)
  Receive Date: 20120904
  Receipt Date: 20120904
  Transmission Date: 20130627
  Serious: Yes (Death, Hospitalization)
  Sender: FDA-Public Use
  Company Number: ES-SANOFI-AVENTIS-2012SA062710

PATIENT
  Age: 67 Year
  Sex: Female
  Weight: 70 kg

DRUGS (4)
  1. DOCETAXEL [Suspect]
     Indication: METASTATIC BREAST CANCER
     Route: 041
     Dates: start: 20100219, end: 20100219
  2. BLINDED THERAPY [Suspect]
     Indication: METASTATIC BREAST CANCER
     Route: 042
     Dates: start: 20100219, end: 20100219
  3. PAROXETINE HYDROCHLORIDE [Concomitant]
  4. ECTREN [Concomitant]

REACTIONS (3)
  - Hepatic failure [Fatal]
  - Neutropenia [Recovered/Resolved]
  - Uterine haemorrhage [Not Recovered/Not Resolved]
